FAERS Safety Report 18129106 (Version 1)
Quarter: 2020Q3

REPORT INFORMATION
  Report Type: Report from Study
  Country: US (occurrence: US)
  Receive Date: 20200810
  Receipt Date: 20200810
  Transmission Date: 20201103
  Serious: Yes (Hospitalization, Other)
  Sender: FDA-Public Use
  Company Number: NVSC2019US093461

PATIENT
  Age: 69 Year
  Sex: Male

DRUGS (3)
  1. TREPROSTINIL. [Suspect]
     Active Substance: TREPROSTINIL
     Dosage: 42 MG/KG/MIN(CONTINUOSLY)
     Route: 042
     Dates: start: 20190719, end: 20190808
  2. INSULIN [Concomitant]
     Active Substance: INSULIN NOS
     Indication: PRODUCT USED FOR UNKNOWN INDICATION
     Dosage: UNK UNK, UNKNOWN
     Route: 065
  3. TREPROSTINIL. [Suspect]
     Active Substance: TREPROSTINIL
     Indication: PULMONARY ARTERIAL HYPERTENSION
     Dosage: 42 MG/KG,(CONTINOUSLY) (42 MG /KG/MIN)
     Route: 042
     Dates: start: 201907

REACTIONS (4)
  - Fall [Unknown]
  - Nervousness [Unknown]
  - Cerebral haemorrhage [Unknown]
  - Product dose omission issue [Unknown]

NARRATIVE: CASE EVENT DATE: 201910
